FAERS Safety Report 22351061 (Version 1)
Quarter: 2023Q2

REPORT INFORMATION
  Report Type: Spontaneous
  Country: US (occurrence: None)
  Receive Date: 20230520
  Receipt Date: 20230520
  Transmission Date: 20230721
  Serious: Yes (Hospitalization)
  Sender: FDA-Public Use
  Company Number: None

PATIENT
  Age: 68 Year
  Sex: Male
  Weight: 74.39 kg

DRUGS (20)
  1. TASIGNA [Suspect]
     Active Substance: NILOTINIB
     Indication: Philadelphia positive chronic myeloid leukaemia
     Dosage: OTHER QUANTITY : 100-50MG;?FREQUENCY : TWICE A DAY;?
     Route: 048
     Dates: start: 202210
  2. AMLODIPINE [Concomitant]
     Active Substance: AMLODIPINE BESYLATE
  3. ASPIRIN [Concomitant]
     Active Substance: ASPIRIN
  4. ATORVASTATIN [Concomitant]
     Active Substance: ATORVASTATIN
  5. CEPHALEXIN [Concomitant]
     Active Substance: CEPHALEXIN
  6. CHLORTHALIDONE [Concomitant]
     Active Substance: CHLORTHALIDONE
  7. CILOSTAZOL [Concomitant]
     Active Substance: CILOSTAZOL
  8. CYCLOBENZAPRINE [Concomitant]
     Active Substance: CYCLOBENZAPRINE
  9. GABAPENTIN [Concomitant]
     Active Substance: GABAPENTIN
  10. HYDRALAZINE [Concomitant]
     Active Substance: HYDRALAZINE HYDROCHLORIDE
  11. IMATINIB [Concomitant]
     Active Substance: IMATINIB
  12. ISOSORBIDE [Concomitant]
     Active Substance: ISOSORBIDE
  13. JANUMET [Concomitant]
     Active Substance: METFORMIN HYDROCHLORIDE\SITAGLIPTIN PHOSPHATE
  14. LEVOTHYROXINE [Concomitant]
     Active Substance: LEVOTHYROXINE
  15. LIDOCAINE [Concomitant]
     Active Substance: LIDOCAINE
  16. METHOCARBAMOL [Concomitant]
     Active Substance: METHOCARBAMOL
  17. METHOPROLOL [Concomitant]
  18. NAPROXEN [Concomitant]
     Active Substance: NAPROXEN
  19. OZEMPIC [Concomitant]
     Active Substance: SEMAGLUTIDE
  20. TRAMADOL [Concomitant]
     Active Substance: TRAMADOL

REACTIONS (1)
  - Hospitalisation [None]
